FAERS Safety Report 9500924 (Version 2)
Quarter: 2013Q4

REPORT INFORMATION
  Report Type: Report from Study
  Country: HR (occurrence: BR)
  Receive Date: 20130905
  Receipt Date: 20131129
  Transmission Date: 20140711
  Serious: Yes (Hospitalization, Other)
  Sender: FDA-Public Use
  Company Number: PHHY2013BR094966

PATIENT
  Age: 75 Year
  Sex: Female

DRUGS (11)
  1. DIOVAN [Suspect]
     Indication: HYPERTENSION
     Dosage: 1 DF (80 MG) IN THE MORNING
     Route: 048
  2. DIOVAN [Suspect]
     Dosage: 1 DF (160 MG) IN THE MORNNG
     Route: 048
  3. DIOVAN [Suspect]
     Dosage: 1 DF (320 MG) IN THE MORNNG
     Route: 048
  4. HYDROCHLOROTHIAZIDE [Suspect]
     Indication: MICTURITION DISORDER
     Dosage: 1 DF (25 MG) DAILY
     Route: 048
  5. ENALAPRIL MALEATE [Suspect]
     Indication: HYPERTENSION
     Dosage: 1 DF (5 MG) DAILY
     Route: 048
  6. RANITIDINE HYDROCHLORIDE [Suspect]
     Indication: HYPERTENSION
     Dosage: 1 DF (20 MG) DAILY
     Route: 048
  7. PURAN T4 [Concomitant]
     Indication: THYROID DISORDER
     Dosage: 1 DF, A DAY
     Route: 048
  8. OMEPRAZOLE [Concomitant]
     Indication: GASTRIC DISORDER
     Dosage: 20 MG, DAILY
     Route: 048
  9. AAS INFANTILE [Concomitant]
     Indication: HYPERTENSION
     Dosage: 1 DF, DAILY
     Route: 048
     Dates: start: 1976
  10. OMNIC OCAS [Concomitant]
     Indication: URINARY INCONTINENCE
     Dosage: 1 DF, A DAY
     Route: 048
  11. RETEMIC UD [Concomitant]
     Indication: URINARY INCONTINENCE
     Dosage: 10 MG, A DAY
     Route: 048

REACTIONS (4)
  - Pneumonia [Recovered/Resolved]
  - Blood pressure increased [Recovered/Resolved]
  - Local swelling [Not Recovered/Not Resolved]
  - Blood cholesterol increased [Recovering/Resolving]
